FAERS Safety Report 6983875-1 (Version None)
Quarter: 2010Q3

REPORT INFORMATION
  Report Type: 
  Country: None (occurrence: None)
  Receive Date: 20100914
  Receipt Date: 20090727
  Transmission Date: 20110219
  Serious: No
  Sender: FDA-Public Use
  Company Number: US-WYE-H08192909

PATIENT
  Sex: Male
  Weight: 108.96 kg

DRUGS (13)
  1. PRISTIQ [Suspect]
     Indication: DEPRESSION
     Route: 048
     Dates: start: 20090204, end: 20090207
  2. PRISTIQ [Suspect]
     Route: 048
     Dates: start: 20090208, end: 20090212
  3. PRISTIQ [Suspect]
     Route: 048
     Dates: start: 20090213
  4. ZYRTEC [Concomitant]
  5. OMEPRAZOLE [Concomitant]
  6. ACETYLSALICYLIC ACID [Concomitant]
  7. BISOPROLOL FUMARATE [Concomitant]
  8. IMODIUM [Concomitant]
  9. ATROVENT [Concomitant]
  10. ALBUTEROL [Concomitant]
  11. NAPROSYN [Concomitant]
  12. CREON [Concomitant]
  13. FLONASE [Concomitant]

REACTIONS (1)
  - FEELING JITTERY [None]
